FAERS Safety Report 9260218 (Version 1)
Quarter: 2013Q2

REPORT INFORMATION
  Report Type: Spontaneous
  Country: US (occurrence: US)
  Receive Date: 20130429
  Receipt Date: 20130429
  Transmission Date: 20140414
  Serious: No
  Sender: FDA-Public Use
  Company Number: US-PFIZER INC-2013130672

PATIENT
  Sex: Female
  Weight: 76.2 kg

DRUGS (2)
  1. PACLITAXEL [Suspect]
     Indication: FALLOPIAN TUBE CANCER
     Dosage: UNK
  2. PACLITAXEL [Suspect]
     Indication: CERVIX CARCINOMA

REACTIONS (1)
  - Neuropathy peripheral [Unknown]
